FAERS Safety Report 9491297 (Version 2)
Quarter: 2013Q1

REPORT INFORMATION
  Report Type: Not Available
  Country: US (occurrence: US)
  Receive Date: 20120619
  Receipt Date: 20120619
  Transmission Date: 20140127
  Serious: Yes (Other)
  Sender: FDA-Public Use
  Company Number: US-LUNDBECK-DKLU1078811

PATIENT
  Sex: Female
  Weight: 45 kg

DRUGS (12)
  1. SABRIL     (TABLET) [Suspect]
     Indication: COMPLEX PARTIAL SEIZURES
     Route: 048
     Dates: start: 20120406
  2. SABRIL     (TABLET) [Suspect]
     Indication: EPILEPSY
     Route: 048
     Dates: start: 2012
  3. SABRIL     (TABLET) [Suspect]
     Route: 048
     Dates: start: 2012
  4. SABRIL     (TABLET) [Suspect]
     Route: 048
     Dates: start: 2012
  5. SABRIL     (TABLET) [Suspect]
     Route: 048
     Dates: start: 2012
  6. SABRIL     (TABLET) [Suspect]
     Route: 048
     Dates: start: 2012
  7. SABRIL     (TABLET) [Suspect]
     Route: 048
     Dates: start: 2012
  8. SABRIL     (TABLET) [Suspect]
     Dates: start: 20120412
  9. SABRIL     (TABLET) [Suspect]
     Dates: start: 2012
  10. LORAZEPAM [Concomitant]
     Indication: PRODUCT USED FOR UNKNOWN INDICATION
  11. DILANTIN [Concomitant]
     Indication: PRODUCT USED FOR UNKNOWN INDICATION
  12. DEPAKOTE [Concomitant]
     Indication: PRODUCT USED FOR UNKNOWN INDICATION

REACTIONS (11)
  - Urinary tract infection [Recovered/Resolved]
  - Crying [Recovered/Resolved]
  - Posture abnormal [Recovered/Resolved]
  - Aggression [Recovered/Resolved]
  - Anger [Unknown]
  - Decreased appetite [Recovered/Resolved]
  - Abnormal behaviour [Unknown]
  - Gait disturbance [Recovered/Resolved]
  - Tremor [Recovered/Resolved]
  - Insomnia [Unknown]
  - Depression [Unknown]
